FAERS Safety Report 23406787 (Version 2)
Quarter: 2024Q1

REPORT INFORMATION
  Report Type: Spontaneous
  Country: US (occurrence: US)
  Receive Date: 20240116
  Receipt Date: 20240119
  Transmission Date: 20240409
  Serious: Yes (Hospitalization)
  Sender: FDA-Public Use
  Company Number: US-VERTEX PHARMACEUTICALS-2024-000392

PATIENT
  Age: 14 Year
  Sex: Female

DRUGS (3)
  1. TRIKAFTA [Suspect]
     Active Substance: ELEXACAFTOR\IVACAFTOR\TEZACAFTOR
     Indication: Cystic fibrosis
     Dosage: UNK
     Route: 048
  2. SALINE [Concomitant]
     Active Substance: SODIUM CHLORIDE
  3. PULMOZYME [Concomitant]
     Active Substance: DORNASE ALFA
     Dosage: IN THE EVENINGS

REACTIONS (17)
  - Cystic fibrosis respiratory infection suppression [Not Recovered/Not Resolved]
  - Respiratory syncytial virus infection [Unknown]
  - Cough [Unknown]
  - Nasopharyngitis [Unknown]
  - Post-tussive vomiting [Unknown]
  - Cataract [Unknown]
  - Skin discolouration [Recovering/Resolving]
  - Asthenia [Recovering/Resolving]
  - Pulmonary function test decreased [Recovering/Resolving]
  - Staphylococcus test positive [Unknown]
  - Serratia test positive [Unknown]
  - Pallor [Unknown]
  - Feeling abnormal [Unknown]
  - Breath sounds abnormal [Unknown]
  - Pseudomonas infection [Unknown]
  - Malaise [Not Recovered/Not Resolved]
  - Depression [Unknown]

NARRATIVE: CASE EVENT DATE: 20230101
